FAERS Safety Report 11119390 (Version 3)
Quarter: 2017Q2

REPORT INFORMATION
  Report Type: Report from Study
  Country: CA (occurrence: CA)
  Receive Date: 20150518
  Receipt Date: 20170628
  Transmission Date: 20170829
  Serious: Yes (Other)
  Sender: FDA-Public Use
  Company Number: CA-AMGEN-CANSL2015046691

PATIENT
  Age: 70 Year
  Sex: Female
  Weight: 87 kg

DRUGS (6)
  1. PROLIA [Suspect]
     Active Substance: DENOSUMAB
     Indication: OSTEOPOROSIS POSTMENOPAUSAL
     Dosage: 60 MG/ML, Q6MO
     Route: 058
     Dates: start: 20141024, end: 20170122
  2. PROLIA [Suspect]
     Active Substance: DENOSUMAB
     Dosage: 60 MG/ML, Q6MO
     Route: 058
     Dates: start: 20150424, end: 20170122
  3. ATENOLOL. [Concomitant]
     Active Substance: ATENOLOL
     Indication: HYPERTENSION
     Dosage: 5 MG, QD
     Dates: start: 20110414
  4. CHLORTHALIDONE. [Concomitant]
     Active Substance: CHLORTHALIDONE
     Indication: HYPERTENSION
     Dosage: 25 MG, QD
     Dates: start: 20110414
  5. VITAMIN D [Concomitant]
     Active Substance: CHOLECALCIFEROL
     Dosage: UNK, BID
  6. CALCIUM [Concomitant]
     Active Substance: CALCIUM
     Dosage: UNK, BID

REACTIONS (7)
  - Sinusitis [Unknown]
  - Ankylosing spondylitis [Unknown]
  - Procedural haemorrhage [Recovered/Resolved]
  - Tooth fracture [Not Recovered/Not Resolved]
  - Tooth extraction [Unknown]
  - Gingivitis [Unknown]
  - Osteomyelitis [Unknown]

NARRATIVE: CASE EVENT DATE: 2014
